FAERS Safety Report 4291516-X (Version None)
Quarter: 2004Q1

REPORT INFORMATION
  Report Type: 
  Country: None (occurrence: None)
  Receive Date: 20040126
  Receipt Date: 20030929
  Transmission Date: 20041129
  Serious: No
  Sender: FDA-Public Use
  Company Number: USA030947322

PATIENT
  Age: 56 Year
  Sex: Female

DRUGS (1)
  1. FORTEO [Suspect]
     Dates: start: 20030801

REACTIONS (4)
  - DIZZINESS [None]
  - INJECTION SITE HAEMORRHAGE [None]
  - NAUSEA [None]
  - VOMITING [None]
